FAERS Safety Report 22518910 (Version 1)
Quarter: 2023Q2

REPORT INFORMATION
  Report Type: Report from Study
  Country: US (occurrence: None)
  Receive Date: 20230605
  Receipt Date: 20230605
  Transmission Date: 20230721
  Serious: Yes (Hospitalization)
  Sender: FDA-Public Use
  Company Number: US-ROCHE-3294599

PATIENT
  Age: 80 Year
  Sex: Female
  Weight: 67.6 kg

DRUGS (3)
  1. OBINUTUZUMAB [Suspect]
     Active Substance: OBINUTUZUMAB
     Indication: Chronic lymphocytic leukaemia
     Dosage: LAST DOSE ADMINISTERED ON 14/JAN/2021?OBINUTUZUMAB 1000 MG INTRAVENOUSLY ON DAYS 1, 8, AND 15 OF CYC
     Route: 042
     Dates: start: 20200827
  2. VENETOCLAX [Suspect]
     Active Substance: VENETOCLAX
     Indication: Chronic lymphocytic leukaemia
     Dosage: LAST DOSE RECEIVED ON 26/AUG/2021, BEGINNING CYCLE 3, PATIENTS ALSO RECEIVE VENETOCLAX PO QD ON DAYS
     Route: 048
     Dates: start: 20201022
  3. IBRUTINIB [Suspect]
     Active Substance: IBRUTINIB
     Indication: Chronic lymphocytic leukaemia
     Dosage: RECEIVED DOSE ON 21/OCT/2021, LAST DOSE ADMINISTERED ON 03/FEB/2023, 15 COURSES RECEIVED?420 MG ORAL
     Route: 048
     Dates: start: 20200827

REACTIONS (2)
  - Cholecystitis [Recovering/Resolving]
  - Abdominal abscess [Not Recovered/Not Resolved]

NARRATIVE: CASE EVENT DATE: 20230204
